FAERS Safety Report 7546001-6 (Version None)
Quarter: 2011Q2

REPORT INFORMATION
  Report Type: 
  Country: None (occurrence: None)
  Receive Date: 20110614
  Receipt Date: 20110601
  Transmission Date: 20111010
  Serious: Yes (Death)
  Sender: FDA-Public Use
  Company Number: PHHY2011DE49752

PATIENT
  Sex: Male
  Weight: 94 kg

DRUGS (6)
  1. ANTIHYPERTENSIVE DRUGS [Concomitant]
  2. STATINS [Concomitant]
  3. ANTIDEPRESSANTS [Concomitant]
  4. ORAL ANTIDIABETICS [Concomitant]
     Indication: DIABETES MELLITUS
  5. ALISKIREN [Suspect]
     Indication: HYPERTENSION
     Dosage: UNK
     Route: 048
     Dates: start: 20090401
  6. ACE INHIBITOR NOS [Concomitant]

REACTIONS (2)
  - DEATH [None]
  - HEART RATE INCREASED [None]
